FAERS Safety Report 8549450-2 (Version None)
Quarter: 2012Q2

REPORT INFORMATION
  Report Type: 
  Country: None (occurrence: None)
  Receive Date: 20120416
  Receipt Date: 20100929
  Transmission Date: 20120825
  Serious: Yes (Other)
  Sender: FDA-Public Use
  Company Number: PHHY2010US65936

PATIENT
  Age: 50 Year
  Sex: Male

DRUGS (1)
  1. DIOVAN [Suspect]
     Dosage: 160 MG ; 320 MG

REACTIONS (4)
  - PHARYNGEAL OEDEMA [None]
  - OEDEMA MOUTH [None]
  - SWOLLEN TONGUE [None]
  - BLOOD PRESSURE INADEQUATELY CONTROLLED [None]
